FAERS Safety Report 17034469 (Version 1)
Quarter: 2019Q4

REPORT INFORMATION
  Report Type: Spontaneous
  Country: FR (occurrence: FR)
  Receive Date: 20191115
  Receipt Date: 20191115
  Transmission Date: 20200122
  Serious: Yes (Hospitalization, Other)
  Sender: FDA-Public Use
  Company Number: FR-SUN PHARMACEUTICAL INDUSTRIES LTD-2019RR-227529

PATIENT
  Age: 25 Year
  Sex: Female

DRUGS (14)
  1. CYCLOPHOSPHAMIDE. [Suspect]
     Active Substance: CYCLOPHOSPHAMIDE
     Indication: SYSTEMIC LUPUS ERYTHEMATOSUS
     Dosage: UNK
     Route: 065
  2. OLANZAPINE. [Suspect]
     Active Substance: OLANZAPINE
     Indication: CATATONIA
     Dosage: 20 MILLIGRAM, DAILY
     Route: 065
  3. TROPATEPINE [Suspect]
     Active Substance: TROPATEPINE
     Indication: CATATONIA
     Dosage: 10 MILLIGRAM
     Route: 048
  4. METHYLPREDNISOLONE. [Suspect]
     Active Substance: METHYLPREDNISOLONE
     Indication: SYSTEMIC LUPUS ERYTHEMATOSUS
     Dosage: 500 MILLIGRAM, UNK
     Route: 042
  5. DIAZEPAM. [Suspect]
     Active Substance: DIAZEPAM
     Indication: CATATONIA
     Dosage: 10 MILLIGRAM, 1 DOSE
     Route: 030
  6. HYDROXYCHLOROQUINE [Suspect]
     Active Substance: HYDROXYCHLOROQUINE
     Indication: SYSTEMIC LUPUS ERYTHEMATOSUS
     Dosage: UNK
     Route: 048
  7. CYAMEMAZINE [Suspect]
     Active Substance: CYAMEMAZINE
     Indication: CATATONIA
     Dosage: UNK
     Route: 065
  8. HALOPERIDOL. [Suspect]
     Active Substance: HALOPERIDOL
     Indication: SYSTEMIC LUPUS ERYTHEMATOSUS
     Dosage: 5 MILLIGRAM, DAILY
     Route: 048
  9. AMISULPRIDE [Suspect]
     Active Substance: AMISULPRIDE
     Indication: CATATONIA
     Dosage: UNK
     Route: 065
  10. LOXAPINE. [Suspect]
     Active Substance: LOXAPINE
     Indication: CATATONIA
     Dosage: 100 MILLIGRAM, 1 DOSE
     Route: 030
  11. VALPROIC ACID. [Suspect]
     Active Substance: VALPROIC ACID
     Indication: CATATONIA
     Dosage: UNK
     Route: 065
  12. PREDNISOLONE. [Suspect]
     Active Substance: PREDNISOLONE
     Indication: SYSTEMIC LUPUS ERYTHEMATOSUS
     Dosage: 1 MICROGRAM/KILOGRAM, DAILY
     Route: 048
  13. ZOLPIDEM [Suspect]
     Active Substance: ZOLPIDEM TARTRATE
     Indication: CATATONIA
     Dosage: 10 MILLIGRAM
     Route: 048
  14. LORAZEPAM. [Suspect]
     Active Substance: LORAZEPAM
     Indication: CATATONIA
     Dosage: 4 MILLIGRAM, DAILY
     Route: 065

REACTIONS (4)
  - Pneumonia aspiration [Unknown]
  - Drug ineffective [Unknown]
  - Catatonia [Recovered/Resolved]
  - Disease progression [Unknown]
